FAERS Safety Report 4641736-7 (Version None)
Quarter: 2005Q2

REPORT INFORMATION
  Report Type: 
  Country: None (occurrence: None)
  Receive Date: 20050421
  Receipt Date: 20050411
  Transmission Date: 20051028
  Serious: Yes (Death, Hospitalization)
  Sender: FDA-Public Use
  Company Number: 2005-04-0662

PATIENT
  Age: 47 Year
  Sex: Female

DRUGS (2)
  1. TEMODAR [Suspect]
     Indication: HAEMANGIOPERICYTOMA
     Dosage: 100MG 5D/WK ORAL
     Route: 048
     Dates: start: 20041216, end: 20050202
  2. RADIATION THERAPY [Concomitant]

REACTIONS (3)
  - DYSPNOEA [None]
  - NEUTROPENIA [None]
  - SEPTIC SHOCK [None]
